FAERS Safety Report 4371771-8 (Version None)
Quarter: 2004Q2

REPORT INFORMATION
  Report Type: 
  Country: None (occurrence: None)
  Receive Date: 20040601
  Receipt Date: 20040518
  Transmission Date: 20050107
  Serious: Yes (Other)
  Sender: FDA-Public Use
  Company Number: S04-USA-02050-01

PATIENT
  Age: 55 Year
  Sex: Female
  Weight: 111.5849 kg

DRUGS (9)
  1. LEXAPRO [Suspect]
     Indication: ANXIETY
     Dosage: 20 MG QD PO
     Route: 048
     Dates: start: 20030210, end: 20040330
  2. LEXAPRO [Suspect]
     Indication: DEPRESSION
     Dosage: 20 MG QD PO
     Route: 048
     Dates: start: 20030210, end: 20040330
  3. LEXAPRO [Suspect]
     Indication: ANXIETY
     Dosage: 20 MG QD PO
     Route: 048
  4. LEXAPRO [Suspect]
     Indication: DEPRESSION
     Dosage: 20 MG QD PO
     Route: 048
  5. AMBIEN [Concomitant]
  6. LOPRESSOR [Concomitant]
  7. ZETIA [Concomitant]
  8. ZYRTEC (CETIRIZINE HYDRODROCHLORIDE) [Concomitant]
  9. ASPIRIN [Concomitant]

REACTIONS (1)
  - HEPATITIS [None]
